FAERS Safety Report 7615747-3 (Version None)
Quarter: 2011Q3

REPORT INFORMATION
  Report Type: 
  Country: None (occurrence: None)
  Receive Date: 20110715
  Receipt Date: 20110715
  Transmission Date: 20111222
  Serious: Yes (Hospitalization)
  Sender: FDA-Public Use
  Company Number: None

PATIENT
  Age: 37 Year
  Sex: Male
  Weight: 67.9488 kg

DRUGS (2)
  1. IMMUNE GLOBULIN NOS [Suspect]
  2. IMMUNE GLOBULIN NOS [Suspect]
     Indication: ANTIPHOSPHOLIPID SYNDROME
     Dosage: IV
     Route: 042
     Dates: start: 20110607, end: 20110608

REACTIONS (10)
  - VOMITING [None]
  - CHILLS [None]
  - HEADACHE [None]
  - SINUS TACHYCARDIA [None]
  - BODY TEMPERATURE INCREASED [None]
  - RESPIRATORY DEPRESSION [None]
  - HYPOXIA [None]
  - NAUSEA [None]
  - RESPIRATORY FAILURE [None]
  - PHOTOPHOBIA [None]
